FAERS Safety Report 4930936-4 (Version None)
Quarter: 2006Q1

REPORT INFORMATION
  Report Type: 
  Country: None (occurrence: None)
  Receive Date: 20060227
  Receipt Date: 20060127
  Transmission Date: 20060701
  Serious: Yes (Other)
  Sender: FDA-Public Use
  Company Number: 13340

PATIENT
  Age: 4 Year
  Sex: Female

DRUGS (4)
  1. METHOTREXATE [Suspect]
     Indication: JUVENILE ARTHRITIS
     Dosage: 7.5 MG WEEKLY SC
     Route: 058
     Dates: start: 20050901
  2. METHOTREXATE [Suspect]
     Indication: JUVENILE ARTHRITIS
     Dosage: 7.5 MG WEEKLY SC
     Route: 058
     Dates: end: 20050201
  3. IBUPROFEN [Concomitant]
  4. TRIAMCINOLONE HEXACETONIDE [Concomitant]

REACTIONS (2)
  - CONDITION AGGRAVATED [None]
  - JUVENILE ARTHRITIS [None]
